FAERS Safety Report 5823022-2 (Version None)
Quarter: 2008Q3

REPORT INFORMATION
  Report Type: 
  Country: None (occurrence: None)
  Receive Date: 20080725
  Receipt Date: 20080717
  Transmission Date: 20090109
  Serious: Yes (Death, Hospitalization)
  Sender: FDA-Public Use
  Company Number: GB-ROCHE-561093

PATIENT
  Sex: Male
  Weight: 76 kg

DRUGS (7)
  1. CAPECITABINE [Suspect]
     Indication: COLON CANCER
     Dosage: THERAPY WAS INTERRUPTED. DOSE- 2000 MG AM, 2000 MG PM
     Route: 048
     Dates: start: 20080318
  2. BEVACIZUMAB [Suspect]
     Indication: COLON CANCER
     Dosage: THERAPY WAS INTERRUPTED.FORM- INFUSION
     Route: 042
     Dates: start: 20080318
  3. AMIODARONE HCL [Concomitant]
     Indication: ARRHYTHMIA
     Route: 048
  4. ACETAMINOPHEN W/ CODEINE [Concomitant]
     Indication: ANALGESIA
     Dosage: DOSE REPORTED AS 30/500
     Route: 048
  5. AMINOPHYLLINE [Concomitant]
     Indication: BRONCHOSPASM
     Route: 048
  6. ATROVENT [Concomitant]
     Route: 055
  7. SERETIDE [Concomitant]
     Dosage: DOSE: 1 PUFF
     Route: 055

REACTIONS (1)
  - PULMONARY EMBOLISM [None]
